FAERS Safety Report 14258839 (Version 4)
Quarter: 2018Q4

REPORT INFORMATION
  Report Type: Spontaneous
  Country: US (occurrence: US)
  Receive Date: 20171207
  Receipt Date: 20181204
  Transmission Date: 20190204
  Serious: No
  Sender: FDA-Public Use
  Company Number: US-CELGENEUS-USA-20171201390

PATIENT
  Age: 69 Year
  Sex: Female

DRUGS (6)
  1. OTEZLA [Suspect]
     Active Substance: APREMILAST
     Indication: PSORIATIC ARTHROPATHY
     Dosage: 10 MILLIGRAM
     Route: 048
     Dates: start: 201708
  2. OTEZLA [Suspect]
     Active Substance: APREMILAST
     Dosage: 30 MILLIGRAM
     Route: 048
     Dates: start: 20170914, end: 201710
  3. FLUOCINONIDE. [Concomitant]
     Active Substance: FLUOCINONIDE
     Indication: PSORIASIS
     Dosage: .05 PERCENT
     Route: 061
     Dates: start: 20170914
  4. OTEZLA [Suspect]
     Active Substance: APREMILAST
     Indication: PSORIASIS
     Dosage: 20 MILLIGRAM
     Route: 048
     Dates: start: 2017, end: 2017
  5. FLUOCINONIDE. [Concomitant]
     Active Substance: FLUOCINONIDE
     Dosage: .05 PERCENT
     Route: 061
     Dates: start: 20180313
  6. FLUOCINONIDE. [Concomitant]
     Active Substance: FLUOCINONIDE
     Indication: PRURITUS
     Dosage: .05 PERCENT
     Route: 061
     Dates: start: 20171102

REACTIONS (4)
  - Acarodermatitis [Recovered/Resolved]
  - Nausea [Unknown]
  - Psoriatic arthropathy [Unknown]
  - Vomiting [Unknown]

NARRATIVE: CASE EVENT DATE: 2017
